FAERS Safety Report 9726459 (Version 1)
Quarter: 2013Q4

REPORT INFORMATION
  Report Type: Spontaneous
  Country: FR (occurrence: FR)
  Receive Date: 20131203
  Receipt Date: 20131203
  Transmission Date: 20140711
  Serious: Yes (Hospitalization, Other)
  Sender: FDA-Public Use
  Company Number: FR-PFIZER INC-2013341531

PATIENT
  Age: 46 Year
  Sex: Female

DRUGS (2)
  1. ADEPAL [Suspect]
     Indication: CONTRACEPTION
     Dosage: UNK
     Route: 048
     Dates: end: 20131024
  2. LUTERAN [Suspect]
     Indication: MENORRHAGIA
     Dosage: UNK
     Route: 048
     Dates: start: 20131022, end: 20131024

REACTIONS (3)
  - Phlebitis [Recovered/Resolved]
  - Pulmonary embolism [Recovered/Resolved]
  - Deep vein thrombosis [Unknown]
